FAERS Safety Report 19380285 (Version 3)
Quarter: 2021Q3

REPORT INFORMATION
  Report Type: Spontaneous
  Country: US (occurrence: US)
  Receive Date: 20210607
  Receipt Date: 20210924
  Transmission Date: 20211014
  Serious: No
  Sender: FDA-Public Use
  Company Number: US-SA-2021SA188016

PATIENT
  Age: 36 Year
  Sex: Female

DRUGS (1)
  1. DUPIXENT [Suspect]
     Active Substance: DUPILUMAB
     Indication: RASH
     Dosage: 300 MG, QOW
     Route: 058
     Dates: start: 20201016

REACTIONS (11)
  - Alopecia [Unknown]
  - Ocular discomfort [Unknown]
  - Unevaluable event [Unknown]
  - Eye allergy [Unknown]
  - Hyperhidrosis [Unknown]
  - Eye pain [Unknown]
  - Product use in unapproved indication [Unknown]
  - Pruritus [Unknown]
  - Ocular hyperaemia [Unknown]
  - Skin exfoliation [Unknown]
  - Photophobia [Unknown]

NARRATIVE: CASE EVENT DATE: 2020
